FAERS Safety Report 14171291 (Version 1)
Quarter: 2017Q4

REPORT INFORMATION
  Report Type: Spontaneous
  Country: US (occurrence: US)
  Receive Date: 20171108
  Receipt Date: 20171108
  Transmission Date: 20180321
  Serious: No
  Sender: FDA-Public Use
  Company Number: US-BAYER-2017-215220

PATIENT
  Sex: Female

DRUGS (5)
  1. MIRENA [Suspect]
     Active Substance: LEVONORGESTREL
     Indication: MENORRHAGIA
     Dosage: 20 MCG/24HR, CONT
     Route: 015
     Dates: end: 201706
  2. MIRENA [Suspect]
     Active Substance: LEVONORGESTREL
     Indication: PELVIC PAIN
  3. MIRENA [Suspect]
     Active Substance: LEVONORGESTREL
     Indication: DYSPAREUNIA
  4. MIRENA [Suspect]
     Active Substance: LEVONORGESTREL
     Indication: HEADACHE
  5. MIRENA [Suspect]
     Active Substance: LEVONORGESTREL
     Indication: PAIN

REACTIONS (1)
  - Drug ineffective [None]
